FAERS Safety Report 5893711-2 (Version None)
Quarter: 2008Q3

REPORT INFORMATION
  Report Type: 
  Country: None (occurrence: None)
  Receive Date: 20080918
  Receipt Date: 20070209
  Transmission Date: 20090109
  Serious: Yes (Hospitalization)
  Sender: FDA-Public Use
  Company Number: 530#6#2007-00018

PATIENT
  Age: 54 Year
  Sex: Male

DRUGS (17)
  1. NEUPRO [Suspect]
     Indication: PARKINSON'S DISEASE
     Dosage: SEE IMAGE
     Route: 062
     Dates: start: 20060824, end: 20060830
  2. NEUPRO [Suspect]
     Indication: PARKINSON'S DISEASE
     Dosage: SEE IMAGE
     Route: 062
     Dates: start: 20060831, end: 20060907
  3. NEUPRO [Suspect]
     Indication: PARKINSON'S DISEASE
     Dosage: SEE IMAGE
     Route: 062
     Dates: start: 20060908, end: 20060911
  4. NEUPRO [Suspect]
     Indication: PARKINSON'S DISEASE
     Dosage: SEE IMAGE
     Route: 062
     Dates: start: 20060912, end: 20060919
  5. NEUPRO [Suspect]
     Indication: PARKINSON'S DISEASE
     Dosage: SEE IMAGE
     Route: 062
     Dates: start: 20060920, end: 20060922
  6. NEUPRO [Suspect]
     Indication: PARKINSON'S DISEASE
     Dosage: SEE IMAGE
     Route: 062
     Dates: start: 20060923, end: 20061016
  7. NEUPRO [Suspect]
     Indication: PARKINSON'S DISEASE
     Dosage: SEE IMAGE
     Route: 062
     Dates: start: 20061017, end: 20061019
  8. AMANTADINE SULFATE 100MG, TABLETS (AMANTADINE SULFATE) [Suspect]
     Indication: PARKINSON'S DISEASE
     Dosage: 200 MG (100 MG 2 IN 1 DAY (S)) ORAL
     Route: 048
     Dates: start: 20060706, end: 20060919
  9. RASAGILIN 1MG, TABLETS [Suspect]
     Indication: PARKINSON'S DISEASE
     Dosage: 1 MG (1 MG IN 1 DAY(S)) ORAL
     Route: 048
     Dates: start: 20061026
  10. AMANTADINE 100MG, TABLETS (AMANTADINE) [Suspect]
     Indication: PARKINSON'S DISEASE
     Dosage: 100 MG (100 MG 1 IN 1 DAY(S)) ORAL
     Route: 048
     Dates: start: 20070705, end: 20071129
  11. AMANTADINE 200MG, TABLETS (AMANTADINE) [Suspect]
     Indication: PARKINSON'S DISEASE
     Dosage: 200 MG (200 MG 1 IN 1 DAY(S)) ORAL
     Route: 048
     Dates: start: 20071130
  12. AMLODIPINEN DOSE UNKNOWN, TABLETS (AMLODIPINE) [Concomitant]
  13. ATENOLOL 10MG, TABLETS (ATENOLOL) [Concomitant]
  14. ENALAPRIL 20MG, TABLETS (ENALAPRIL) [Concomitant]
  15. (CAPTOPRIL/HYDROCHLOROTHIAZIDE) 300MG, TABLETS (CAPTOPRIL, HYDROCHLORO [Concomitant]
  16. CHININ SULFATE 100MG, TABLETS (AMINOPHYLLINE, QUININE SULFATE) [Concomitant]
  17. ACETYLSALICYLIC ACID 100MG, TABLETS (ACETYLSALICYLIC ACID) [Concomitant]

REACTIONS (4)
  - CONDITION AGGRAVATED [None]
  - HYPERTENSION [None]
  - MONOPARESIS [None]
  - SLEEP ATTACKS [None]
